FAERS Safety Report 12850324 (Version 1)
Quarter: 2016Q4

REPORT INFORMATION
  Report Type: Spontaneous
  Country: IN (occurrence: IN)
  Receive Date: 20161014
  Receipt Date: 20161014
  Transmission Date: 20170207
  Serious: Yes (Hospitalization)
  Sender: FDA-Public Use
  Company Number: IN-SA-2016SA183886

PATIENT
  Age: 17 Month
  Sex: Male
  Weight: 7.9 kg

DRUGS (11)
  1. PYRAZINAMIDE. [Suspect]
     Active Substance: PYRAZINAMIDE
     Indication: TUBERCULOSIS
     Dosage: HRZ
     Route: 065
     Dates: start: 200912, end: 2010
  2. PYRAZINAMIDE. [Suspect]
     Active Substance: PYRAZINAMIDE
     Indication: TUBERCULOSIS
     Dosage: HRZE
     Route: 065
     Dates: start: 2010
  3. ETHAMBUTOL [Suspect]
     Active Substance: ETHAMBUTOL HYDROCHLORIDE
     Indication: TUBERCULOSIS
     Route: 065
     Dates: start: 2010
  4. MOXIFLOXACIN HYDROCHLORIDE. [Suspect]
     Active Substance: MOXIFLOXACIN HYDROCHLORIDE
     Indication: TUBERCULOSIS
     Route: 065
     Dates: start: 2010
  5. ETHIONAMIDE [Suspect]
     Active Substance: ETHIONAMIDE
     Indication: TUBERCULOSIS
     Route: 065
     Dates: start: 2010
  6. ISONIAZID. [Suspect]
     Active Substance: ISONIAZID
     Indication: TUBERCULOSIS
     Dosage: HRZ
     Route: 065
     Dates: start: 200912, end: 2010
  7. ISONIAZID. [Suspect]
     Active Substance: ISONIAZID
     Indication: TUBERCULOSIS
     Dosage: HRZE
     Route: 065
     Dates: start: 2010
  8. STREPTOMYCIN SULFATE. [Suspect]
     Active Substance: STREPTOMYCIN SULFATE
     Indication: TUBERCULOSIS
     Route: 065
     Dates: start: 2010
  9. RIFAMPICIN [Suspect]
     Active Substance: RIFAMPIN
     Indication: TUBERCULOSIS
     Dosage: HRZE
     Route: 065
     Dates: start: 2010
  10. AMIKACIN SULFATE. [Suspect]
     Active Substance: AMIKACIN SULFATE
     Indication: TUBERCULOSIS
     Route: 065
     Dates: start: 2010
  11. RIFAMPICIN [Suspect]
     Active Substance: RIFAMPIN
     Indication: TUBERCULOSIS
     Dosage: HRZ
     Route: 065
     Dates: start: 200912, end: 2010

REACTIONS (13)
  - Irritability [Recovered/Resolved]
  - Condition aggravated [Recovered/Resolved]
  - Nuclear magnetic resonance imaging brain abnormal [Recovered/Resolved]
  - Paradoxical drug reaction [Recovered/Resolved]
  - Vomiting projectile [Recovered/Resolved]
  - Hydrocephalus [Recovered/Resolved]
  - Drug ineffective [Unknown]
  - CSF protein increased [Recovered/Resolved]
  - Off label use [Unknown]
  - Meningitis tuberculous [Recovered/Resolved]
  - Pyrexia [Recovered/Resolved]
  - Tuberculoma of central nervous system [Recovered/Resolved]
  - Drug resistance [Recovered/Resolved]
